FAERS Safety Report 4296539-2 (Version None)
Quarter: 2004Q1

REPORT INFORMATION
  Report Type: 
  Country: None (occurrence: None)
  Receive Date: 20040126
  Receipt Date: 20030825
  Transmission Date: 20041129
  Serious: No
  Sender: FDA-Public Use
  Company Number: USA030845310

PATIENT
  Age: 36 Year
  Sex: Male

DRUGS (3)
  1. STRATTERA [Suspect]
     Indication: ATTENTION DEFICIT/HYPERACTIVITY DISORDER
     Dosage: 25 MG/DAY
     Dates: start: 20030801
  2. BEXTRA [Concomitant]
  3. MAXALT (RIZATRIPTAN) [Concomitant]

REACTIONS (2)
  - DRUG EFFECT DECREASED [None]
  - MIGRAINE [None]
